FAERS Safety Report 17941149 (Version 2)
Quarter: 2020Q3

REPORT INFORMATION
  Report Type: Report from Study
  Country: AU (occurrence: AU)
  Receive Date: 20200624
  Receipt Date: 20200804
  Transmission Date: 20201103
  Serious: Yes (Hospitalization)
  Sender: FDA-Public Use
  Company Number: AU-REGENERON PHARMACEUTICALS, INC.-2020-44497

PATIENT

DRUGS (3)
  1. CEMIPLIMAB [Suspect]
     Active Substance: CEMIPLIMAB
     Indication: SQUAMOUS CELL CARCINOMA
     Dosage: 350 MG
     Route: 042
     Dates: start: 20200520, end: 20200520
  2. RP1 [Suspect]
     Active Substance: SERINE/THREONINE-PROTEIN KINASE 19
     Dosage: 1 X 10^7 PFU/ML (1 IN 3 WK)
     Route: 036
     Dates: start: 20200520, end: 20200520
  3. RP1 [Suspect]
     Active Substance: SERINE/THREONINE-PROTEIN KINASE 19
     Indication: SQUAMOUS CELL CARCINOMA
     Dosage: 1 X 10^6 PFU/ML (1 IN 3 WK)
     Route: 036
     Dates: start: 20200428, end: 20200428

REACTIONS (1)
  - Groin pain [Not Recovered/Not Resolved]

NARRATIVE: CASE EVENT DATE: 20200611
